FAERS Safety Report 6185117-6 (Version None)
Quarter: 2009Q2

REPORT INFORMATION
  Report Type: 
  Country: None (occurrence: None)
  Receive Date: 20090507
  Receipt Date: 20090420
  Transmission Date: 20091009
  Serious: Yes (Hospitalization)
  Sender: FDA-Public Use
  Company Number: B0571504A

PATIENT
  Sex: Male

DRUGS (4)
  1. ACETAMINOPHEN [Suspect]
     Indication: RESPIRATORY TRACT INFECTION
     Dates: start: 20070101
  2. IBUPROFEN [Suspect]
     Indication: RESPIRATORY TRACT INFECTION
  3. IMATINIB MESYLATE [Concomitant]
  4. CYCLOSPORINE [Concomitant]

REACTIONS (6)
  - ANAL ABSCESS [None]
  - APLASTIC ANAEMIA [None]
  - BLOOD CULTURE POSITIVE [None]
  - ENTEROCOCCAL INFECTION [None]
  - FUNGAL INFECTION [None]
  - STENOTROPHOMONAS INFECTION [None]
